FAERS Safety Report 19764558 (Version 7)
Quarter: 2021Q4

REPORT INFORMATION
  Report Type: Spontaneous
  Country: PL (occurrence: PL)
  Receive Date: 20210830
  Receipt Date: 20211123
  Transmission Date: 20220304
  Serious: Yes (Hospitalization, Other)
  Sender: FDA-Public Use
  Company Number: PL-002147023-NVSC2021PL058669

PATIENT
  Age: 49 Year
  Sex: Male

DRUGS (21)
  1. ROSUVASTATIN [Suspect]
     Active Substance: ROSUVASTATIN
     Indication: Product used for unknown indication
     Dosage: 30 MILLIGRAM QD (30 MG (1X1 TABLETS IN THE EVENING))
     Route: 065
  2. ROSUVASTATIN [Suspect]
     Active Substance: ROSUVASTATIN
     Dosage: 1 DOSAGE FORM, QD
     Route: 065
  3. TRIMETAZIDINE DIHYDROCHLORIDE [Suspect]
     Active Substance: TRIMETAZIDINE DIHYDROCHLORIDE
     Indication: Product used for unknown indication
     Dosage: 35 MILLIGRAM (35 MG (2X 1 TABLET/MORNING AND EVENING))
     Route: 065
  4. TRIMETAZIDINE DIHYDROCHLORIDE [Suspect]
     Active Substance: TRIMETAZIDINE DIHYDROCHLORIDE
     Dosage: 2 DOSAGE FORM, BID (2 DF, BID)
     Route: 065
  5. EZETIMIBE [Suspect]
     Active Substance: EZETIMIBE
     Indication: Product used for unknown indication
     Dosage: 10 MILLIGRAM (10 MG (1X 1 TABLET/NIGHT))
     Route: 065
  6. FENOFIBRATE [Suspect]
     Active Substance: FENOFIBRATE
     Indication: Product used for unknown indication
     Dosage: 125 MILLIGRAM QD (125 MG (1X 1 TABLET/MORNING))
     Route: 065
  7. FENOFIBRATE [Suspect]
     Active Substance: FENOFIBRATE
     Dosage: 25 MILLIGRAM QD (25 MG (1X 1 TABLET/MORNING) )
     Route: 065
  8. RAMIPRIL [Suspect]
     Active Substance: RAMIPRIL
     Indication: Product used for unknown indication
     Dosage: 5 MILLIGRAM (5 MG (1X 1 TABLETS IN THE EVENING))
     Route: 065
  9. RAMIPRIL [Suspect]
     Active Substance: RAMIPRIL
     Dosage: 1 DOSAGE FORM, QD
     Route: 065
  10. ENTRESTO [Suspect]
     Active Substance: SACUBITRIL\VALSARTAN
     Indication: Product used for unknown indication
     Dosage: UNK (UNK (2X97/103MG))
     Route: 065
  11. ENTRESTO [Suspect]
     Active Substance: SACUBITRIL\VALSARTAN
     Dosage: UNK UNK, QD (49/51 MG 2 X DAY )
     Route: 065
     Dates: start: 20190910
  12. CARVEDILOL [Suspect]
     Active Substance: CARVEDILOL
     Indication: Product used for unknown indication
     Dosage: 50 MILLIGRAM, QD (25 MG, BID (2X1 TABLETS/MORNING AND EVENING))
     Route: 065
  13. CARVEDILOL [Suspect]
     Active Substance: CARVEDILOL
     Dosage: 25 MG, Q12H
  14. CARVEDILOL [Suspect]
     Active Substance: CARVEDILOL
     Dosage: 25 MG (BID)
  15. EPLERENONE [Suspect]
     Active Substance: EPLERENONE
     Indication: Product used for unknown indication
     Dosage: 25 MILLIGRAM QD (25 MG(1X 1 TABLET/HALF))
     Route: 065
  16. EPLERENONE [Suspect]
     Active Substance: EPLERENONE
     Dosage: 0.5 DOSAGE FORM (0.5 DF (25 MG(1 TABLET/HALF))
     Route: 065
  17. BISOPROLOL [Suspect]
     Active Substance: BISOPROLOL
     Indication: Product used for unknown indication
     Dosage: 5 MILLIGRAM, QD (5 MG, QD)
     Route: 065
  18. ASPIRIN [Suspect]
     Active Substance: ASPIRIN
     Indication: Product used for unknown indication
     Dosage: 75 MILLIGRAM (75 MG (1X 1 TABLETS IN THE EVENING))
     Route: 065
  19. OMEGA-3 FATTY ACIDS [Suspect]
     Active Substance: OMEGA-3 FATTY ACIDS
     Indication: Product used for unknown indication
     Dosage: 2 DOSAGE FORM (2X 1 TABLET)
     Route: 065
  20. OMEGA-3 FATTY ACIDS [Suspect]
     Active Substance: OMEGA-3 FATTY ACIDS
     Dosage: UNK (UNK (DOSE TEXT: 2 TABLET))
     Route: 065
  21. TRIMETAZIDINE DIHYDROCHLORIDE [Suspect]
     Active Substance: TRIMETAZIDINE DIHYDROCHLORIDE
     Indication: Product used for unknown indication
     Dosage: 2 DOSAGE FORM, 12 HOURS (2 DF, BID )
     Route: 065

REACTIONS (5)
  - Electrocardiogram abnormal [Unknown]
  - Rales [Unknown]
  - General physical health deterioration [Unknown]
  - Fatigue [Unknown]
  - Dyspnoea [Unknown]
